FAERS Safety Report 9112737 (Version 1)
Quarter: 2013Q1

REPORT INFORMATION
  Report Type: Spontaneous
  Country: DE (occurrence: DE)
  Receive Date: 20130211
  Receipt Date: 20130211
  Transmission Date: 20140127
  Serious: Yes (Other)
  Sender: FDA-Public Use
  Company Number: DE-ELI_LILLY_AND_COMPANY-DE201302002971

PATIENT
  Age: 56 Year
  Sex: Male
  Weight: 81 kg

DRUGS (3)
  1. GEMZAR [Suspect]
     Indication: BILE DUCT CANCER
     Dosage: UNK
     Dates: start: 201004
  2. CISPLATIN [Concomitant]
     Indication: BILE DUCT CANCER
     Dosage: UNK
     Dates: start: 201004
  3. CETUXIMAB [Concomitant]
     Indication: BILE DUCT CANCER
     Dosage: UNK
     Dates: start: 201201

REACTIONS (3)
  - Malignant neoplasm progression [Unknown]
  - Malignant neoplasm progression [Unknown]
  - Off label use [Unknown]
